FAERS Safety Report 16536056 (Version 2)
Quarter: 2019Q3

REPORT INFORMATION
  Report Type: Spontaneous
  Country: DE (occurrence: DE)
  Receive Date: 20190705
  Receipt Date: 20190713
  Transmission Date: 20191004
  Serious: Yes (Other)
  Sender: FDA-Public Use
  Company Number: PHHY2019DE152038

PATIENT
  Age: 78 Year
  Sex: Male
  Weight: 74 kg

DRUGS (4)
  1. VOLON A40 [Concomitant]
     Active Substance: TRIAMCINOLONE ACETONIDE
     Indication: VERTEBRAL FORAMINAL STENOSIS
  2. VOLON A40 [Concomitant]
     Active Substance: TRIAMCINOLONE ACETONIDE
     Indication: SPINAL CLAUDICATION
     Dosage: 40 MG, TOTAL (1 DF (PERIRADIKULAERE INJEKTION)SEIT 2014 ALLE 5 - 6 WOCHEN)
     Route: 065
     Dates: start: 20180827, end: 20180827
  3. LEVOFLOXACIN. [Suspect]
     Active Substance: LEVOFLOXACIN
     Indication: CYSTITIS-LIKE SYMPTOM
     Dosage: 250 MG, QD
     Route: 065
     Dates: start: 20180825, end: 20180829
  4. VOLON A40 [Concomitant]
     Active Substance: TRIAMCINOLONE ACETONIDE
     Indication: SPINAL STENOSIS

REACTIONS (15)
  - Dysstasia [Not Recovered/Not Resolved]
  - Gait disturbance [Not Recovered/Not Resolved]
  - Peroneal nerve palsy [Not Recovered/Not Resolved]
  - Polyneuropathy [Not Recovered/Not Resolved]
  - Burning sensation [Not Recovered/Not Resolved]
  - Asthenia [Not Recovered/Not Resolved]
  - Pain [Not Recovered/Not Resolved]
  - Paraesthesia [Not Recovered/Not Resolved]
  - Tendonitis [Not Recovered/Not Resolved]
  - Limb discomfort [Not Recovered/Not Resolved]
  - Anaesthesia [Not Recovered/Not Resolved]
  - Pain in extremity [Not Recovered/Not Resolved]
  - Tendonitis [Not Recovered/Not Resolved]
  - Asthenia [Not Recovered/Not Resolved]
  - Fatigue [Not Recovered/Not Resolved]

NARRATIVE: CASE EVENT DATE: 20180829
